FAERS Safety Report 13501999 (Version 18)
Quarter: 2017Q4

REPORT INFORMATION
  Report Type: Report from Study
  Country: CA (occurrence: CA)
  Receive Date: 20170502
  Receipt Date: 20171019
  Transmission Date: 20180320
  Serious: Yes (Hospitalization, Disabling, Other)
  Sender: FDA-Public Use
  Company Number: CA-ROCHE-1781063

PATIENT
  Age: 55 Year
  Sex: Male
  Weight: 112 kg

DRUGS (3)
  1. DILANTIN [Suspect]
     Active Substance: PHENYTOIN
     Indication: PRODUCT USED FOR UNKNOWN INDICATION
     Route: 065
  2. AVASTIN [Suspect]
     Active Substance: BEVACIZUMAB
     Indication: BRAIN NEOPLASM MALIGNANT
     Route: 042
     Dates: start: 20160613
  3. AVASTIN [Suspect]
     Active Substance: BEVACIZUMAB
     Dosage: START TIME: 17.00; STOP TIME: 18.45; TOTAL INFUSION TIME: 105
     Route: 042
     Dates: start: 20170418, end: 20170921

REACTIONS (30)
  - Blood alkaline phosphatase decreased [Recovered/Resolved]
  - Blood albumin decreased [Recovered/Resolved]
  - Weight decreased [Unknown]
  - Protein urine present [Not Recovered/Not Resolved]
  - Monocyte count increased [Recovered/Resolved]
  - Heart rate increased [Unknown]
  - Drug level decreased [Recovered/Resolved]
  - Blindness [Unknown]
  - Neutrophil count increased [Recovered/Resolved]
  - Musculoskeletal pain [Recovering/Resolving]
  - Blood chloride decreased [Recovered/Resolved]
  - Nasopharyngitis [Unknown]
  - Protein total decreased [Not Recovered/Not Resolved]
  - Oxygen saturation decreased [Unknown]
  - Blood pressure increased [Unknown]
  - Blindness [Not Recovered/Not Resolved]
  - Blood creatinine decreased [Not Recovered/Not Resolved]
  - Seizure [Unknown]
  - Mean platelet volume decreased [Not Recovered/Not Resolved]
  - Blood potassium decreased [Recovered/Resolved]
  - Headache [Recovering/Resolving]
  - Protein urine [Unknown]
  - Blood test abnormal [Unknown]
  - Venous oxygen saturation decreased [Unknown]
  - Blood bicarbonate increased [Unknown]
  - Cough [Not Recovered/Not Resolved]
  - Cholecystitis [Not Recovered/Not Resolved]
  - Alanine aminotransferase increased [Recovered/Resolved]
  - Blood urea increased [Recovered/Resolved]
  - Base excess increased [Unknown]

NARRATIVE: CASE EVENT DATE: 20160725
